FAERS Safety Report 23848796 (Version 1)
Quarter: 2024Q2

REPORT INFORMATION
  Report Type: Spontaneous
  Country: US (occurrence: None)
  Receive Date: 20240510
  Receipt Date: 20240510
  Transmission Date: 20240716
  Serious: Yes (Hospitalization)
  Sender: FDA-Public Use
  Company Number: None

PATIENT
  Age: 40 Year
  Sex: Female
  Weight: 49.5 kg

DRUGS (1)
  1. METHYLPREDNISOLONE [Suspect]
     Active Substance: METHYLPREDNISOLONE
     Indication: Sinusitis
     Dosage: OTHER QUANTITY : 21 CAPSULE(S);?OTHER FREQUENCY : DOSED TO REDUCE;?
     Route: 048

REACTIONS (6)
  - Insomnia [None]
  - Personality change [None]
  - Mania [None]
  - Job dissatisfaction [None]
  - Tachycardia [None]
  - Impaired driving ability [None]

NARRATIVE: CASE EVENT DATE: 20221206
